FAERS Safety Report 6131018-9 (Version None)
Quarter: 2009Q1

REPORT INFORMATION
  Report Type: 
  Country: None (occurrence: None)
  Receive Date: 20090325
  Receipt Date: 20090317
  Transmission Date: 20090719
  Serious: No
  Sender: FDA-Public Use
  Company Number: US-BAYER-200841765NA

PATIENT
  Sex: Female

DRUGS (1)
  1. MIRENA [Suspect]
     Indication: CONTRACEPTION
     Dosage: CONTINUOUS
     Route: 015
     Dates: start: 20071001, end: 20081218

REACTIONS (4)
  - IUCD COMPLICATION [None]
  - MENSTRUATION DELAYED [None]
  - PREGNANCY TEST POSITIVE [None]
  - PREGNANCY WITH CONTRACEPTIVE DEVICE [None]
